FAERS Safety Report 4547076-9 (Version None)
Quarter: 2005Q1

REPORT INFORMATION
  Report Type: 
  Country: None (occurrence: None)
  Receive Date: 20050105
  Receipt Date: 20041225
  Transmission Date: 20050727
  Serious: Yes (Other)
  Sender: FDA-Public Use
  Company Number: 21532

PATIENT
  Sex: Male

DRUGS (1)
  1. NIASPAN [Suspect]

REACTIONS (1)
  - MYOCARDIAL INFARCTION [None]
